FAERS Safety Report 14320236 (Version 1)
Quarter: 2017Q4

REPORT INFORMATION
  Report Type: Spontaneous
  Country: US (occurrence: US)
  Receive Date: 20171222
  Receipt Date: 20171222
  Transmission Date: 20180321
  Serious: Yes (Hospitalization)
  Sender: FDA-Public Use
  Company Number: None

PATIENT
  Age: 78 Year
  Sex: Male

DRUGS (22)
  1. FLUCONAZOLE. [Concomitant]
     Active Substance: FLUCONAZOLE
  2. ASPIRIN. [Concomitant]
     Active Substance: ASPIRIN
  3. FINASTERIDE. [Concomitant]
     Active Substance: FINASTERIDE
  4. VITAMIN C [Concomitant]
     Active Substance: ASCORBIC ACID
  5. GABAPENTIN. [Concomitant]
     Active Substance: GABAPENTIN
  6. METOCLOPRAMIDE. [Concomitant]
     Active Substance: METOCLOPRAMIDE
  7. SUCRALFATE. [Concomitant]
     Active Substance: SUCRALFATE
  8. TIMOLOL. [Concomitant]
     Active Substance: TIMOLOL
  9. AMLODIPINE [Concomitant]
     Active Substance: AMLODIPINE BESYLATE
  10. DOXAZOSIN [Concomitant]
     Active Substance: DOXAZOSIN\DOXAZOSIN MESYLATE
  11. HYDRALAZINE [Concomitant]
     Active Substance: HYDRALAZINE HYDROCHLORIDE
  12. LATANOPROST. [Concomitant]
     Active Substance: LATANOPROST
  13. ONDANSETRON [Concomitant]
     Active Substance: ONDANSETRON
  14. VITAMIN D3 [Concomitant]
     Active Substance: CHOLECALCIFEROL
  15. ATOVAQUONE. [Concomitant]
     Active Substance: ATOVAQUONE
  16. LISINOPRIL. [Concomitant]
     Active Substance: LISINOPRIL
  17. OMEPRAZOLE. [Concomitant]
     Active Substance: OMEPRAZOLE
  18. TACROLIMUS. [Suspect]
     Active Substance: TACROLIMUS
     Indication: RENAL TRANSPLANT
     Dosage: 6 ML EVERY 12 HOURS VIA J TUBE?          ?
  19. CARAFATE [Concomitant]
     Active Substance: SUCRALFATE
  20. FUROSEMIDE. [Concomitant]
     Active Substance: FUROSEMIDE
  21. AMOXICILLIN. [Concomitant]
     Active Substance: AMOXICILLIN
  22. PREDNISONE. [Concomitant]
     Active Substance: PREDNISONE

REACTIONS (2)
  - Pyrexia [None]
  - Urinary retention [None]

NARRATIVE: CASE EVENT DATE: 20171210
